FAERS Safety Report 7179184-0 (Version None)
Quarter: 2010Q4

REPORT INFORMATION
  Report Type: 
  Country: None (occurrence: None)
  Receive Date: 20101221
  Receipt Date: 20101209
  Transmission Date: 20110411
  Serious: Yes (Hospitalization)
  Sender: FDA-Public Use
  Company Number: IT-ELI_LILLY_AND_COMPANY-IT201012002470

PATIENT
  Sex: Male

DRUGS (5)
  1. EFFIENT [Suspect]
     Indication: ANGINA UNSTABLE
     Dosage: 10 MG, DAILY (1/D)
     Route: 048
     Dates: start: 20100901, end: 20101124
  2. ACETYLSALICYLIC ACID [Concomitant]
  3. ATORVASTATIN [Concomitant]
  4. BLOPRESS [Concomitant]
  5. ZYLORIC [Concomitant]

REACTIONS (2)
  - ARTHRITIS [None]
  - PALPABLE PURPURA [None]
